FAERS Safety Report 25301689 (Version 2)
Quarter: 2025Q2

REPORT INFORMATION
  Report Type: Report from Study
  Country: US (occurrence: US)
  Receive Date: 20250512
  Receipt Date: 20250519
  Transmission Date: 20250717
  Serious: Yes (Other)
  Sender: NOVARTIS
  Company Number: US-002147023-NVSC2024US207906

PATIENT
  Age: 72 Year
  Sex: Female

DRUGS (2)
  1. LEQVIO [Suspect]
     Active Substance: INCLISIRAN SODIUM
     Indication: Product used for unknown indication
     Route: 058
     Dates: start: 20241022
  2. LEQVIO [Suspect]
     Active Substance: INCLISIRAN SODIUM
     Route: 058

REACTIONS (7)
  - Pneumothorax [Unknown]
  - Pulmonary mass [Unknown]
  - Injection site pain [Recovered/Resolved]
  - Inappropriate schedule of product administration [Unknown]
  - Bronchitis [Unknown]
  - Chest discomfort [Unknown]
  - Haemoptysis [Unknown]

NARRATIVE: CASE EVENT DATE: 20241022
